FAERS Safety Report 5412215-4 (Version None)
Quarter: 2007Q3

REPORT INFORMATION
  Report Type: 
  Country: None (occurrence: None)
  Receive Date: 20070809
  Receipt Date: 20070802
  Transmission Date: 20080115
  Serious: Yes (Other)
  Sender: FDA-Public Use
  Company Number: 2007SP015732

PATIENT
  Age: 45 Year
  Sex: Male

DRUGS (4)
  1. PEG-INTRON [Suspect]
     Indication: HEPATITIS C
     Dosage: SC
     Route: 058
     Dates: start: 20070420
  2. RIBAVIRIN [Suspect]
     Indication: HEPATITIS C
     Dosage: PO
     Route: 048
     Dates: start: 20070420
  3. CELEXA (CON.) [Concomitant]
  4. INSULIN (CON.) [Concomitant]

REACTIONS (4)
  - ABNORMAL BEHAVIOUR [None]
  - ANAEMIA [None]
  - ANGER [None]
  - PHARYNGEAL OEDEMA [None]
